FAERS Safety Report 9890929 (Version 1)
Quarter: 2014Q1

REPORT INFORMATION
  Report Type: Spontaneous
  Country: GB (occurrence: None)
  Receive Date: 20140210
  Receipt Date: 20140210
  Transmission Date: 20141002
  Serious: Yes (Other)
  Sender: FDA-Public Use
  Company Number: AUR-APL-2014-01324

PATIENT
  Sex: Female

DRUGS (2)
  1. LAMOTRIGINE [Suspect]
     Indication: EPILEPSY
  2. SUDAFED [Suspect]
     Indication: NASOPHARYNGITIS

REACTIONS (3)
  - Convulsion [None]
  - Drug interaction [None]
  - Nasopharyngitis [None]
